FAERS Safety Report 13891480 (Version 3)
Quarter: 2017Q4

REPORT INFORMATION
  Report Type: Report from Study
  Country: None (occurrence: US)
  Receive Date: 20170822
  Receipt Date: 20171107
  Transmission Date: 20180320
  Serious: Yes (Other)
  Sender: FDA-Public Use
  Company Number: US-ABBVIE-17K-163-2076922-00

PATIENT
  Age: 62 Year
  Sex: Female

DRUGS (33)
  1. PROAIR HFA [Concomitant]
     Active Substance: ALBUTEROL SULFATE
     Indication: CHRONIC OBSTRUCTIVE PULMONARY DISEASE
     Dosage: 2 PUFFS EVERY 4 HOURS AS NEEDED FOR WHEEZING
     Route: 055
  2. ATORVASTATIN [Concomitant]
     Active Substance: ATORVASTATIN
     Indication: BLOOD CHOLESTEROL INCREASED
     Dates: start: 2011
  3. HUMIRA [Suspect]
     Active Substance: ADALIMUMAB
     Indication: PSORIASIS
  4. PREDNISONE. [Concomitant]
     Active Substance: PREDNISONE
     Indication: RHEUMATOID ARTHRITIS
     Dates: start: 2012
  5. CYCLOBENZAPRINE. [Concomitant]
     Active Substance: CYCLOBENZAPRINE
     Indication: MUSCLE SPASMS
     Dates: start: 2004
  6. HYOSCYAMINE. [Concomitant]
     Active Substance: HYOSCYAMINE
     Indication: GASTROINTESTINAL PAIN
     Dates: start: 2015
  7. NASACORT [Concomitant]
     Active Substance: TRIAMCINOLONE ACETONIDE
     Indication: NASAL PRURITUS
  8. SALINE [Concomitant]
     Active Substance: SODIUM CHLORIDE
     Indication: NASAL DISCOMFORT
  9. BISACODYL. [Concomitant]
     Active Substance: BISACODYL
     Indication: CONSTIPATION
     Dosage: USED ONLY IF THE LINZESS DOES NOT HELP
     Dates: start: 2011
  10. VITAMIN B12 [Concomitant]
     Active Substance: CYANOCOBALAMIN
     Indication: ALOPECIA
     Dates: start: 2016
  11. SPIRIVA [Concomitant]
     Active Substance: TIOTROPIUM BROMIDE MONOHYDRATE
     Indication: CHRONIC OBSTRUCTIVE PULMONARY DISEASE
     Dates: start: 2015
  12. DOMPERIDONE [Concomitant]
     Active Substance: DOMPERIDONE
     Indication: IMPAIRED GASTRIC EMPTYING
     Dates: start: 2012
  13. MS CONTIN [Concomitant]
     Active Substance: MORPHINE SULFATE
     Indication: PERIPHERAL NERVE NEUROSTIMULATION
     Dates: start: 2016
  14. PREMARIN [Concomitant]
     Active Substance: ESTROGENS, CONJUGATED
     Indication: ELDERLY
     Dates: start: 2014
  15. CALCIUM VITAMIN D [Concomitant]
     Active Substance: CALCIUM\VITAMIN D
     Indication: OSTEOPOROSIS
     Dates: start: 2012
  16. ASPIRIN. [Concomitant]
     Active Substance: ASPIRIN
     Indication: CEREBROVASCULAR ACCIDENT
     Dates: start: 2017
  17. MUPIROCIN OINTMENT USP 2% [Concomitant]
     Active Substance: MUPIROCIN
     Indication: NASAL ULCER
     Dates: start: 2016
  18. ARIPIPRAZOLE. [Concomitant]
     Active Substance: ARIPIPRAZOLE
     Indication: DEPRESSION
     Dates: start: 2016
  19. PROLIA [Concomitant]
     Active Substance: DENOSUMAB
     Indication: OSTEOPOROSIS
     Dates: start: 2012
  20. SALINE [Concomitant]
     Active Substance: SODIUM CHLORIDE
     Indication: NASAL DISCOMFORT
     Dosage: TWO SQUIRTS IN EACH NOSTRIL AS NEEDED FOR DRYNESS
     Dates: start: 2016
  21. HUMIRA [Suspect]
     Active Substance: ADALIMUMAB
     Indication: RHEUMATOID ARTHRITIS
     Route: 058
  22. BREO ELLIPTA [Concomitant]
     Active Substance: FLUTICASONE FUROATE\VILANTEROL TRIFENATATE
     Indication: CHRONIC OBSTRUCTIVE PULMONARY DISEASE
     Dosage: 200/25 MCG INH
     Dates: start: 2015
  23. LINZESS [Concomitant]
     Active Substance: LINACLOTIDE
     Indication: IMPAIRED GASTRIC EMPTYING
     Dates: start: 2012
  24. FOLIC ACID. [Concomitant]
     Active Substance: FOLIC ACID
     Indication: ANAEMIA
     Dosage: CHANGED IN 2016 TO THREE TABLETS
     Dates: start: 2017
  25. DULOXETINE HCL [Concomitant]
     Active Substance: DULOXETINE HYDROCHLORIDE
     Indication: ANXIETY
  26. METHOTREXATE. [Concomitant]
     Active Substance: METHOTREXATE
     Indication: RHEUMATOID ARTHRITIS
     Dates: start: 2012
  27. NORCO [Concomitant]
     Active Substance: ACETAMINOPHEN\HYDROCODONE BITARTRATE
     Indication: PERIPHERAL NERVE NEUROSTIMULATION
     Dates: start: 2012
  28. DULOXETINE HCL [Concomitant]
     Active Substance: DULOXETINE HYDROCHLORIDE
     Indication: DEPRESSION
     Dates: start: 2016
  29. ARIPIPRAZOLE. [Concomitant]
     Active Substance: ARIPIPRAZOLE
     Indication: ANXIETY
  30. TYLENOL [Concomitant]
     Active Substance: ACETAMINOPHEN
     Indication: PRODUCT USED FOR UNKNOWN INDICATION
     Dosage: TWO CAPSULES ONE HOUR PRIOR TO REMICADE INFUSIONS
     Dates: start: 2012
  31. CLARITIN [Concomitant]
     Active Substance: LORATADINE
     Indication: PRODUCT USED FOR UNKNOWN INDICATION
     Dosage: ONE CAPSULE ONE HOUR PRIOR TO REMICADE INFUSIONS
     Dates: start: 2012
  32. NASACORT [Concomitant]
     Active Substance: TRIAMCINOLONE ACETONIDE
     Indication: NASAL DRYNESS
     Dosage: TWO SQUIRTS IN EACH NOSTRIL
     Dates: start: 2016
  33. SPIRONOLACTONE. [Concomitant]
     Active Substance: SPIRONOLACTONE
     Indication: ALOPECIA
     Dates: start: 2016

REACTIONS (2)
  - Cardiovascular disorder [Unknown]
  - Cerebrovascular accident [Unknown]

NARRATIVE: CASE EVENT DATE: 201707
